FAERS Safety Report 11574257 (Version 2)
Quarter: 2016Q1

REPORT INFORMATION
  Report Type: Spontaneous
  Country: US (occurrence: US)
  Receive Date: 20150930
  Receipt Date: 20160202
  Transmission Date: 20160525
  Serious: Yes (Hospitalization, Other)
  Sender: FDA-Public Use
  Company Number: US-CIPLA LTD.-2015US07528

PATIENT

DRUGS (8)
  1. METHOTREXATE [Suspect]
     Active Substance: METHOTREXATE
     Route: 065
  2. LAMOTRIGINE. [Suspect]
     Active Substance: LAMOTRIGINE
     Dosage: DOSE INCREASED
     Route: 065
  3. ATIVAN [Suspect]
     Active Substance: LORAZEPAM
     Route: 065
  4. LAMOTRIGINE. [Suspect]
     Active Substance: LAMOTRIGINE
     Indication: SEIZURE
     Route: 065
  5. TIMOLOL-BRIMONIDINE [Suspect]
     Active Substance: BRIMONIDINE TARTRATE\TIMOLOL MALEATE
     Indication: OCULAR HYPERTENSION
     Route: 065
  6. DORZOLAMIDE EYE DROPS 2% W/V [Suspect]
     Active Substance: DORZOLAMIDE
     Indication: OCULAR HYPERTENSION
     Route: 065
  7. PREDNISONE. [Suspect]
     Active Substance: PREDNISONE
     Indication: TUBULOINTERSTITIAL NEPHRITIS
     Route: 065
  8. CYCLOPENTOLATE [Suspect]
     Active Substance: CYCLOPENTOLATE
     Route: 065

REACTIONS (16)
  - Dizziness [Unknown]
  - Iridocyclitis [Not Recovered/Not Resolved]
  - Back pain [Unknown]
  - Blood creatinine increased [Unknown]
  - Eosinophil count increased [Unknown]
  - Retinal artery occlusion [Unknown]
  - Drug intolerance [Unknown]
  - Cogan^s syndrome [Unknown]
  - Seizure [Unknown]
  - Beta 2 microglobulin urine increased [Unknown]
  - Chorioretinopathy [Unknown]
  - Swelling face [Unknown]
  - Ocular hypertension [None]
  - Tubulointerstitial nephritis and uveitis syndrome [Unknown]
  - Rash [Unknown]
  - Deafness neurosensory [Unknown]
